FAERS Safety Report 8274285-8 (Version None)
Quarter: 2012Q2

REPORT INFORMATION
  Report Type: 
  Country: None (occurrence: None)
  Receive Date: 20120411
  Receipt Date: 20120411
  Transmission Date: 20120825
  Serious: Yes (Other)
  Sender: FDA-Public Use
  Company Number: None

PATIENT
  Age: 69 Year
  Sex: Female
  Weight: 66.224 kg

DRUGS (3)
  1. DITROPAN [Suspect]
     Indication: BLADDER OPERATION
  2. DITROPAN [Suspect]
     Indication: URINARY RETENTION
  3. DITROPAN [Suspect]
     Indication: POST PROCEDURAL COMPLICATION

REACTIONS (11)
  - PALPITATIONS [None]
  - PAIN [None]
  - LIP DRY [None]
  - DRY SKIN [None]
  - CONSTIPATION [None]
  - BLOOD PRESSURE INCREASED [None]
  - DRY MOUTH [None]
  - DIZZINESS [None]
  - FLATULENCE [None]
  - ATRIAL FIBRILLATION [None]
  - MALAISE [None]
